FAERS Safety Report 9277261 (Version 3)
Quarter: 2013Q4

REPORT INFORMATION
  Report Type: Report from Study
  Country: BR (occurrence: BR)
  Receive Date: 20130508
  Receipt Date: 20131126
  Transmission Date: 20140711
  Serious: Yes (Hospitalization, Other)
  Sender: FDA-Public Use
  Company Number: BR-ROCHE-1213287

PATIENT
  Sex: Female
  Weight: 59 kg

DRUGS (10)
  1. MABTHERA [Suspect]
     Indication: RHEUMATOID ARTHRITIS
     Dosage: /NOV/2012, LAST INFUSION WAS RECEIVED
     Route: 042
     Dates: start: 20110520, end: 20121122
  2. ACTEMRA [Suspect]
     Indication: RHEUMATOID ARTHRITIS
     Route: 042
     Dates: start: 20130611
  3. PREDNISONE [Suspect]
     Indication: PRODUCT USED FOR UNKNOWN INDICATION
     Route: 065
  4. DIPYRONE [Concomitant]
     Indication: PAIN
     Route: 065
  5. ULTRACET [Concomitant]
     Indication: PAIN
     Route: 065
  6. ALENDRONATE [Concomitant]
     Indication: OSTEOPOROSIS
  7. CHONDROITIN [Concomitant]
     Route: 065
  8. VALIUM [Concomitant]
     Route: 065
  9. DORFLEX [Concomitant]
  10. AMITRIPTYLINE [Concomitant]
     Indication: RESTLESS LEGS SYNDROME

REACTIONS (8)
  - Cataract operation [Recovered/Resolved]
  - Arthralgia [Not Recovered/Not Resolved]
  - Arthropathy [Unknown]
  - Arthralgia [Not Recovered/Not Resolved]
  - Headache [Not Recovered/Not Resolved]
  - Arthralgia [Not Recovered/Not Resolved]
  - Hypertension [Not Recovered/Not Resolved]
  - Arthralgia [Recovered/Resolved]
